FAERS Safety Report 4956657-X (Version None)
Quarter: 2006Q1

REPORT INFORMATION
  Report Type: 
  Country: None (occurrence: None)
  Receive Date: 20060323
  Receipt Date: 20060310
  Transmission Date: 20060701
  Serious: Yes (Hospitalization)
  Sender: FDA-Public Use
  Company Number: 2006-BP-02744RO

PATIENT
  Age: 48 Year
  Sex: Male

DRUGS (7)
  1. CHLORPROMAZINE [Suspect]
     Indication: SCHIZOPHRENIA
     Dosage: 650 MG QHS
  2. TRIHEXYPHENIDYL HCL [Suspect]
     Indication: SCHIZOPHRENIA
     Dosage: 2 MG BID (2 MG),
  3. ZUCLOPENTHIXOL (ZUCLOPENTHIXOL) [Suspect]
     Indication: SCHIZOPHRENIA
     Dosage: 600 MG IM EVERY 4 WEEKS, IM
     Route: 030
  4. METFORMIN HCL [Concomitant]
  5. GLYBURIDE [Concomitant]
  6. DIAZEPAM [Concomitant]
  7. VALPROATE SODIUM [Concomitant]

REACTIONS (19)
  - ACTIVATED PARTIAL THROMBOPLASTIN TIME PROLONGED [None]
  - ANXIETY [None]
  - BLOOD GLUCOSE INCREASED [None]
  - BLOOD PRESSURE DECREASED [None]
  - BLOOD PRESSURE SYSTOLIC INCREASED [None]
  - COMA [None]
  - DRY SKIN [None]
  - DYSKINESIA [None]
  - HEART RATE INCREASED [None]
  - HEAT EXHAUSTION [None]
  - HEAT STROKE [None]
  - LOSS OF CONSCIOUSNESS [None]
  - METABOLIC ACIDOSIS [None]
  - PROTHROMBIN TIME PROLONGED [None]
  - PYREXIA [None]
  - RENAL IMPAIRMENT [None]
  - RHABDOMYOLYSIS [None]
  - THROMBOCYTOPENIA [None]
  - VENTRICULAR TACHYCARDIA [None]
